FAERS Safety Report 13340031 (Version 1)
Quarter: 2017Q1

REPORT INFORMATION
  Report Type: Report from Study
  Country: BR (occurrence: BR)
  Receive Date: 20170316
  Receipt Date: 20170316
  Transmission Date: 20170428
  Serious: Yes (Other)
  Sender: FDA-Public Use
  Company Number: PHHY2017BR039404

PATIENT
  Sex: Female
  Weight: 77 kg

DRUGS (3)
  1. ACLASTA [Suspect]
     Active Substance: ZOLEDRONIC ACID
     Indication: OSTEOPOROSIS
     Dosage: 5 MG, Q12MO
     Route: 042
  2. METHOTREXATE. [Concomitant]
     Active Substance: METHOTREXATE
     Indication: PRODUCT USED FOR UNKNOWN INDICATION
     Dosage: 1 DF, QW
     Route: 005
  3. ANASEPTIL [Concomitant]
     Indication: PRODUCT USED FOR UNKNOWN INDICATION
     Dosage: 1 DF, QW
     Route: 065

REACTIONS (11)
  - Visual impairment [Unknown]
  - Syncope [Unknown]
  - Blood pressure decreased [Unknown]
  - Condition aggravated [Not Recovered/Not Resolved]
  - Musculoskeletal pain [Not Recovered/Not Resolved]
  - Malaise [Recovered/Resolved]
  - Hyperhidrosis [Unknown]
  - Infection [Unknown]
  - Osteonecrosis of jaw [Unknown]
  - Headache [Unknown]
  - Dizziness [Unknown]
